FAERS Safety Report 6080894-7 (Version None)
Quarter: 2009Q1

REPORT INFORMATION
  Report Type: 
  Country: None (occurrence: None)
  Receive Date: 20090217
  Receipt Date: 20090213
  Transmission Date: 20090719
  Serious: Yes (Hospitalization)
  Sender: FDA-Public Use
  Company Number: US-ASTRAZENECA-2009UW04246

PATIENT
  Age: 22815 Day
  Sex: Female

DRUGS (1)
  1. NEXIUM [Suspect]
     Dosage: NEXIUM WAS TEMPORARILY STOPPED DURING THE HOSPITAL STAY (HOSPITAL DID NOT CARRY NEXIUM).
     Route: 048
     Dates: start: 20070101

REACTIONS (2)
  - CARDIAC FAILURE CONGESTIVE [None]
  - PNEUMONIA [None]
